FAERS Safety Report 4365569-4 (Version None)
Quarter: 2004Q2

REPORT INFORMATION
  Report Type: 
  Country: None (occurrence: None)
  Receive Date: 20040526
  Receipt Date: 20030717
  Transmission Date: 20050107
  Serious: Yes (Other)
  Sender: FDA-Public Use
  Company Number: FR-ROCHE-342428

PATIENT
  Age: 16 Year
  Sex: Female

DRUGS (3)
  1. ROACCUTANE [Suspect]
     Indication: DRUG USE FOR UNKNOWN INDICATION
     Route: 065
  2. NORETHINDRONE ACETATE AND ETHINYL ESTRADIOL [Concomitant]
  3. OESTROGEN-PROGESTOGEN, COMBINED [Concomitant]
     Indication: ORAL CONTRACEPTION
     Route: 048

REACTIONS (5)
  - APHASIA [None]
  - CEREBRAL HAEMORRHAGE [None]
  - CEREBRAL ISCHAEMIA [None]
  - FACIAL PALSY [None]
  - HEMIPARESIS [None]
